FAERS Safety Report 18020371 (Version 1)
Quarter: 2020Q3

REPORT INFORMATION
  Report Type: Spontaneous
  Country: NO (occurrence: NO)
  Receive Date: 20200714
  Receipt Date: 20200714
  Transmission Date: 20201103
  Serious: Yes (Life-Threatening)
  Sender: FDA-Public Use
  Company Number: NO-PFIZER INC-2020265712

PATIENT
  Age: 11 Year
  Sex: Female

DRUGS (5)
  1. ZOLOFT [Suspect]
     Active Substance: SERTRALINE HYDROCHLORIDE
     Dosage: 100 MG  DAILY (WEEK 3)
     Route: 048
     Dates: start: 202005, end: 202005
  2. ZOLOFT [Suspect]
     Active Substance: SERTRALINE HYDROCHLORIDE
     Indication: DEPRESSION
     Dosage: 75 MG DAILY (WEEK 2)
     Route: 048
     Dates: start: 202004, end: 202005
  3. ZOLOFT [Suspect]
     Active Substance: SERTRALINE HYDROCHLORIDE
     Indication: OBSESSIVE-COMPULSIVE DISORDER
     Dosage: 50 MG DAILY (WEEK 1)
     Route: 048
     Dates: start: 20200421, end: 202004
  4. ZOLOFT [Suspect]
     Active Substance: SERTRALINE HYDROCHLORIDE
     Dosage: 50 MG, DAILY (DOSE REDUCED TO 50 MG)
     Route: 048
     Dates: start: 20200529, end: 20200529
  5. ZOLOFT [Suspect]
     Active Substance: SERTRALINE HYDROCHLORIDE
     Dosage: 25 MG, DAILY (DOSE REDUCED TO 25 MG)
     Route: 048
     Dates: start: 20200530, end: 20200610

REACTIONS (3)
  - Self-injurious ideation [Recovering/Resolving]
  - Intentional self-injury [Recovering/Resolving]
  - Suicide attempt [Recovering/Resolving]

NARRATIVE: CASE EVENT DATE: 202005
